FAERS Safety Report 7318237-0 (Version None)
Quarter: 2011Q1

REPORT INFORMATION
  Report Type: 
  Country: None (occurrence: None)
  Receive Date: 20110228
  Receipt Date: 20110216
  Transmission Date: 20110831
  Serious: No
  Sender: FDA-Public Use
  Company Number: US-BIOGENIDEC-2011BI006557

PATIENT
  Age: 50 Year
  Sex: Male

DRUGS (1)
  1. TYSABRI [Suspect]
     Indication: MULTIPLE SCLEROSIS
     Route: 042
     Dates: start: 20101206

REACTIONS (5)
  - BLADDER DYSFUNCTION [None]
  - BLOOD PRESSURE DECREASED [None]
  - PHARYNGITIS STREPTOCOCCAL [None]
  - FATIGUE [None]
  - CHILLS [None]
